FAERS Safety Report 5507298-7 (Version None)
Quarter: 2007Q4

REPORT INFORMATION
  Report Type: 
  Country: None (occurrence: None)
  Receive Date: 20071019
  Receipt Date: 20071012
  Transmission Date: 20080405
  Serious: Yes (Other)
  Sender: FDA-Public Use
  Company Number: 200712308

PATIENT
  Age: 78 Year
  Sex: Female
  Weight: 65 kg

DRUGS (13)
  1. SANDOGLOBULIN [Suspect]
     Indication: HYPOGAMMAGLOBULINAEMIA
     Dosage: 5 G ONCE IV
     Route: 042
     Dates: start: 20071009, end: 20071009
  2. SANDOGLOBULIN [Suspect]
     Indication: INFECTION
     Dosage: 5 G ONCE IV
     Route: 042
     Dates: start: 20071009, end: 20071009
  3. ASPIRIN [Concomitant]
  4. NORVASC /00972401/ [Concomitant]
  5. RAMIPRIL [Concomitant]
  6. CONCOR /01166101/ [Concomitant]
  7. MUCOSOLVAN /00546001/ [Concomitant]
  8. HEPARIN SODIUM [Concomitant]
  9. LASIX [Concomitant]
  10. MERONEM /01250501/ [Concomitant]
  11. GLUCOSE G40 [Concomitant]
  12. AMINOACETIC [Concomitant]
  13. INSUMAN RAPID [Concomitant]

REACTIONS (5)
  - CHILLS [None]
  - DYSPNOEA [None]
  - HYPERSENSITIVITY [None]
  - INFUSION RELATED REACTION [None]
  - TACHYCARDIA [None]
